FAERS Safety Report 10953120 (Version 1)
Quarter: 2015Q1

REPORT INFORMATION
  Report Type: Spontaneous
  Country: AU (occurrence: None)
  Receive Date: 20150323
  Receipt Date: 20150323
  Transmission Date: 20150721
  Serious: Yes (Life-Threatening)
  Sender: FDA-Public Use
  Company Number: 2015AU011097

PATIENT
  Age: 76 Year
  Sex: Female
  Weight: 74.5 kg

DRUGS (4)
  1. ALOXI [Suspect]
     Active Substance: PALONOSETRON HYDROCHLORIDE
     Route: 042
  2. DEXAMETHASONE (DEXAMETHASONE) [Suspect]
     Active Substance: DEXAMETHASONE
     Route: 048
  3. DEXTROSE (GLUCOSE) [Concomitant]
     Active Substance: DEXTROSE
  4. DOXORUBICIN [Concomitant]
     Active Substance: DOXORUBICIN

REACTIONS (5)
  - Tachycardia [None]
  - Dyspnoea [None]
  - Back pain [None]
  - Dizziness [None]
  - Flushing [None]
